FAERS Safety Report 8746049 (Version 2)
Quarter: 2013Q4

REPORT INFORMATION
  Report Type: Spontaneous
  Country: BR (occurrence: BR)
  Receive Date: 20120827
  Receipt Date: 20131108
  Transmission Date: 20140711
  Serious: Yes (Hospitalization)
  Sender: FDA-Public Use
  Company Number: BR-009507513-1208BRA009014

PATIENT
  Age: 52 Year
  Sex: Male
  Weight: 81 kg

DRUGS (11)
  1. RIBAVIRIN [Suspect]
     Indication: HEPATITIS C
     Dosage: UNK
     Route: 048
     Dates: start: 2005, end: 2005
  2. RIBAVIRIN [Suspect]
     Dosage: UNK
     Route: 048
     Dates: start: 201112, end: 201204
  3. RIBAVIRIN [Suspect]
     Dosage: UNK, BID
     Route: 048
     Dates: start: 201204, end: 20120618
  4. PEGASYS [Concomitant]
     Indication: HEPATITIS C
     Dosage: UNK
     Route: 058
     Dates: start: 2005, end: 2005
  5. PEGASYS [Concomitant]
     Dosage: UNK
     Route: 058
     Dates: start: 201112, end: 201204
  6. PEGASYS [Concomitant]
     Dosage: UNK, BIW
     Route: 058
     Dates: start: 201204, end: 20120618
  7. VICTRELIS [Suspect]
     Indication: HEPATITIS C
     Dosage: 800 MG, TID
     Route: 048
     Dates: start: 20120118, end: 201204
  8. VICTRELIS [Suspect]
     Dosage: UNK, TID
     Route: 048
     Dates: start: 201204, end: 20120618
  9. COUMADIN [Concomitant]
     Indication: ANTIPLATELET THERAPY
     Dosage: UNK
     Dates: end: 2005
  10. COUMADIN [Concomitant]
     Dosage: UNK
     Dates: start: 2012
  11. LANZOPRAZOL [Concomitant]
     Indication: GASTRIC DISORDER
     Dosage: UNK
     Route: 048
     Dates: start: 2012

REACTIONS (15)
  - Viral load increased [Unknown]
  - Fluid retention [Unknown]
  - Local swelling [Unknown]
  - Swelling [Unknown]
  - Drug ineffective [Unknown]
  - Pyrexia [Recovered/Resolved]
  - Hypoaesthesia [Recovering/Resolving]
  - Malaise [Recovered/Resolved]
  - Alopecia [Not Recovered/Not Resolved]
  - Sensitivity of teeth [Recovered/Resolved]
  - Varicose vein ruptured [Recovered/Resolved]
  - Gynaecomastia [Not Recovered/Not Resolved]
  - Breast pain [Unknown]
  - Prescribed overdose [Unknown]
  - Prescribed overdose [Unknown]
